FAERS Safety Report 7811454-2 (Version None)
Quarter: 2011Q4

REPORT INFORMATION
  Report Type: 
  Country: None (occurrence: None)
  Receive Date: 20111013
  Receipt Date: 20111011
  Transmission Date: 20120403
  Serious: Yes (Other)
  Sender: FDA-Public Use
  Company Number: JP-PFIZER INC-2011242726

PATIENT
  Age: 88 Year
  Sex: Female

DRUGS (1)
  1. LYRICA [Suspect]
     Indication: NEUROPATHY PERIPHERAL
     Dosage: 75 MG DAILY
     Route: 048
     Dates: start: 20110909, end: 20111008

REACTIONS (8)
  - DIZZINESS [None]
  - HEADACHE [None]
  - BLOOD PRESSURE INCREASED [None]
  - PYREXIA [None]
  - HYPERHIDROSIS [None]
  - CONVULSION [None]
  - NAUSEA [None]
  - LOSS OF CONSCIOUSNESS [None]
